FAERS Safety Report 7706747-3 (Version None)
Quarter: 2011Q3

REPORT INFORMATION
  Report Type: 
  Country: None (occurrence: None)
  Receive Date: 20110824
  Receipt Date: 20110815
  Transmission Date: 20111222
  Serious: Yes (Hospitalization)
  Sender: FDA-Public Use
  Company Number: US-ROCHE-797339

PATIENT
  Sex: Female
  Weight: 95.2 kg

DRUGS (9)
  1. LEXAPRO [Concomitant]
  2. ZANTAC [Concomitant]
  3. FISH OIL [Concomitant]
     Dosage: QD
  4. KEPPRA [Concomitant]
  5. TYLENOL-500 [Concomitant]
     Dosage: 500-1000 MG PRN
  6. BEVACIZUMAB [Suspect]
     Indication: MALIGNANT GLIOMA
     Dosage: ALL PATIENTS IN THIS STUDY WILL BE RECEIVING BEVACIZUMAB ON DAY 1 AND DAY 15 OF EACH CYCLE.
     Route: 065
  7. DECADRON [Concomitant]
  8. DIPHENHYDRAMINE HCL [Concomitant]
     Dosage: 25 MG QHS
  9. LBH589 [Suspect]
     Indication: GLIOBLASTOMA
     Route: 065
     Dates: start: 20110808, end: 20110811

REACTIONS (2)
  - BRADYCARDIA [None]
  - HEADACHE [None]
